FAERS Safety Report 11792293 (Version 1)
Quarter: 2015Q4

REPORT INFORMATION
  Report Type: Spontaneous
  Country: US (occurrence: US)
  Receive Date: 20151201
  Receipt Date: 20151201
  Transmission Date: 20160305
  Serious: Yes (Hospitalization)
  Sender: FDA-Public Use
  Company Number: US-BAYER-2015-472658

PATIENT
  Age: 77 Year
  Sex: Female

DRUGS (7)
  1. ADEMPAS [Suspect]
     Active Substance: RIOCIGUAT
     Dosage: UNK
  2. FLOLAN [Suspect]
     Active Substance: EPOPROSTENOL SODIUM
     Indication: PULMONARY EMBOLISM
     Dosage: 36 NG/KG/MIN
     Dates: start: 20010916
  3. FLOLAN [Suspect]
     Active Substance: EPOPROSTENOL SODIUM
     Indication: PULMONARY EMBOLISM
     Dosage: 33 NG/KG/MIN
  4. COUMADIN [Concomitant]
     Active Substance: WARFARIN SODIUM
  5. FLOLAN [Suspect]
     Active Substance: EPOPROSTENOL SODIUM
     Indication: PULMONARY EMBOLISM
     Dosage: 33 NG/KG/MIN
  6. FLOLAN [Suspect]
     Active Substance: EPOPROSTENOL SODIUM
     Indication: PULMONARY EMBOLISM
     Dosage: UNK
  7. FLOLAN [Suspect]
     Active Substance: EPOPROSTENOL SODIUM
     Indication: PULMONARY EMBOLISM
     Dosage: 37 NG/KG/MIN
     Dates: start: 20040916

REACTIONS (17)
  - Medical device complication [None]
  - Dyspnoea [None]
  - Atrial fibrillation [None]
  - Diarrhoea [None]
  - Cardiac failure congestive [None]
  - International normalised ratio fluctuation [None]
  - Nausea [None]
  - Tearfulness [None]
  - Pericardial effusion [None]
  - Headache [None]
  - Nervousness [None]
  - Lung disorder [None]
  - Decreased appetite [None]
  - Respiration abnormal [Recovered/Resolved]
  - Abdominal pain upper [None]
  - Catheter site extravasation [None]
  - Vomiting [None]
